FAERS Safety Report 11254864 (Version 1)
Quarter: 2015Q3

REPORT INFORMATION
  Report Type: Spontaneous
  Country: US (occurrence: US)
  Receive Date: 20150709
  Receipt Date: 20150709
  Transmission Date: 20151125
  Serious: Yes (Other)
  Sender: FDA-Public Use
  Company Number: US-GSKJP-US2014GSK054519AA

PATIENT
  Sex: Male

DRUGS (14)
  1. DIGOXIN. [Concomitant]
     Active Substance: DIGOXIN
  2. COMBIVENT [Concomitant]
     Active Substance: ALBUTEROL SULFATE\IPRATROPIUM BROMIDE
  3. SPIRIVA [Concomitant]
     Active Substance: TIOTROPIUM BROMIDE MONOHYDRATE
  4. VOTRIENT [Suspect]
     Active Substance: PAZOPANIB HYDROCHLORIDE
     Indication: RENAL CANCER
     Dosage: 800 MG, QD
     Route: 048
     Dates: start: 20140807
  5. NEXIUM [Concomitant]
     Active Substance: ESOMEPRAZOLE MAGNESIUM
  6. CALCIUM AND MAGNESIUM WITH VITAMIN D [Concomitant]
  7. COREG [Concomitant]
     Active Substance: CARVEDILOL
  8. XANAX [Concomitant]
     Active Substance: ALPRAZOLAM
  9. CALCIUM + MAGNESIUM + ZINC [Concomitant]
     Active Substance: CALCIUM\MAGNESIUM\ZINC
  10. SINGULAIR [Concomitant]
     Active Substance: MONTELUKAST SODIUM
  11. ADVAIR HFA [Concomitant]
     Active Substance: FLUTICASONE PROPIONATE\SALMETEROL XINAFOATE
  12. ZOCOR [Concomitant]
     Active Substance: SIMVASTATIN
  13. LISINOPRIL-HCTZ [Concomitant]
     Active Substance: HYDROCHLOROTHIAZIDE\LISINOPRIL
  14. ATROVENT [Concomitant]
     Active Substance: IPRATROPIUM BROMIDE

REACTIONS (5)
  - Liver disorder [Not Recovered/Not Resolved]
  - Ageusia [Unknown]
  - Renal disorder [Unknown]
  - Nephrectomy [Unknown]
  - Liver injury [Unknown]
